FAERS Safety Report 5074742-1 (Version None)
Quarter: 2006Q3

REPORT INFORMATION
  Report Type: 
  Country: None (occurrence: None)
  Receive Date: 20060804
  Receipt Date: 20060720
  Transmission Date: 20061208
  Serious: Yes (Hospitalization)
  Sender: FDA-Public Use
  Company Number: 2006BI007343

PATIENT
  Age: 39 Year
  Sex: Female
  Weight: 77.5651 kg

DRUGS (28)
  1. AVONEX [Suspect]
     Indication: MULTIPLE SCLEROSIS
     Dosage: 30 UG QW IM
     Route: 030
     Dates: start: 20060209, end: 20060412
  2. CALCIUM GLUCONATE [Concomitant]
  3. MAGNESIUM [Concomitant]
  4. QUININE SULFATE [Concomitant]
  5. NEURONTIN [Concomitant]
  6. ALLERGY PILL NOS [Concomitant]
  7. DITROPAN [Concomitant]
  8. TRAZODONE HCL [Concomitant]
  9. SEROQUEL [Concomitant]
  10. OXYCODONE HCL [Concomitant]
  11. ALLEGRA [Concomitant]
  12. BACLOFEN [Concomitant]
  13. LIDOCAINE HCL VISCOUS [Concomitant]
  14. ROBAXIN [Concomitant]
  15. NAPROXEN SODIUM [Concomitant]
  16. CALCIUM WITH VITAMIN D [Concomitant]
  17. REGLAN [Concomitant]
  18. TOPRICIN [Concomitant]
  19. FLONASE [Concomitant]
  20. LOVENOX [Concomitant]
  21. AMANTADINE HCL [Concomitant]
  22. MAXALT [Concomitant]
  23. DITROPAN [Concomitant]
  24. PEPCID AC [Concomitant]
  25. EFFEXOR XR [Concomitant]
  26. BACLOFEN [Concomitant]
  27. DEPO-PROVERA [Concomitant]
  28. ALBUTEROL [Concomitant]

REACTIONS (14)
  - ABNORMAL BEHAVIOUR [None]
  - ASTHENIA [None]
  - DEHYDRATION [None]
  - DRUG ABUSER [None]
  - ENCEPHALOPATHY [None]
  - HYPOAESTHESIA [None]
  - IMPAIRED SELF-CARE [None]
  - INCOHERENT [None]
  - INTENTIONAL DRUG MISUSE [None]
  - MENTAL DISORDER [None]
  - MULTIPLE DRUG OVERDOSE [None]
  - MULTIPLE SCLEROSIS RELAPSE [None]
  - MUSCLE SPASMS [None]
  - SUICIDAL IDEATION [None]
